FAERS Safety Report 7755308-9 (Version None)
Quarter: 2011Q3

REPORT INFORMATION
  Report Type: 
  Country: None (occurrence: None)
  Receive Date: 20110914
  Receipt Date: 20110906
  Transmission Date: 20111222
  Serious: Yes (Hospitalization)
  Sender: FDA-Public Use
  Company Number: 1036793

PATIENT
  Age: 11 Year
  Sex: Female

DRUGS (2)
  1. VINCRISTINE SULFATE [Suspect]
     Indication: T-CELL TYPE ACUTE LEUKAEMIA
  2. PIPERACILLIN AND TAZOBACTAM [Suspect]
     Indication: FEBRILE NEUTROPENIA

REACTIONS (5)
  - ILEUS PARALYTIC [None]
  - AUTONOMIC NEUROPATHY [None]
  - CHOLESTASIS [None]
  - NEUROTOXICITY [None]
  - DRUG INTERACTION [None]
